FAERS Safety Report 20416470 (Version 1)
Quarter: 2022Q1

REPORT INFORMATION
  Report Type: Spontaneous
  Country: US (occurrence: None)
  Receive Date: 20220201
  Receipt Date: 20220201
  Transmission Date: 20220424
  Serious: Yes (Other)
  Sender: FDA-Public Use
  Company Number: None

PATIENT
  Age: 63 Year
  Sex: Female
  Weight: 79.2 kg

DRUGS (17)
  1. NICOTROL [Suspect]
     Active Substance: NICOTINE
     Indication: Helicobacter test
     Dosage: OTHER QUANTITY : 7 SPRAY(S);?OTHER FREQUENCY : PRN EVERY 20 MINUT;?
     Route: 055
  2. Serialize [Concomitant]
  3. DEXILANT [Concomitant]
     Active Substance: DEXLANSOPRAZOLE
  4. TRAZODONE [Concomitant]
     Active Substance: TRAZODONE HYDROCHLORIDE
  5. TRELEGY ELLIPTA [Concomitant]
     Active Substance: FLUTICASONE FUROATE\UMECLIDINIUM BROMIDE\VILANTEROL TRIFENATATE
  6. Ellipta [Concomitant]
  7. LORAZEPAM [Concomitant]
     Active Substance: LORAZEPAM
  8. ADVAIR HFA [Concomitant]
     Active Substance: FLUTICASONE PROPIONATE\SALMETEROL XINAFOATE
  9. DICYCLOMINE [Concomitant]
     Active Substance: DICYCLOMINE HYDROCHLORIDE
  10. olmasartan medoximil [Concomitant]
  11. ONDANSETRON [Concomitant]
     Active Substance: ONDANSETRON
  12. ATORVASTATIN [Concomitant]
     Active Substance: ATORVASTATIN
  13. dry eye drops [Concomitant]
  14. 2L 24 hour oxygen [Concomitant]
  15. AZELASTINE [Concomitant]
     Active Substance: AZELASTINE
  16. FLUTICASONE PROPIONATE [Concomitant]
     Active Substance: FLUTICASONE PROPIONATE
  17. TYLENOL [Concomitant]
     Active Substance: ACETAMINOPHEN

REACTIONS (6)
  - Oral mucosal exfoliation [None]
  - Gingival discolouration [None]
  - Tongue discomfort [None]
  - Oral pain [None]
  - Oral discomfort [None]
  - Headache [None]

NARRATIVE: CASE EVENT DATE: 20220130
